FAERS Safety Report 7236962-7 (Version None)
Quarter: 2011Q1

REPORT INFORMATION
  Report Type: 
  Country: None (occurrence: None)
  Receive Date: 20110121
  Receipt Date: 20110112
  Transmission Date: 20110831
  Serious: Yes (Hospitalization)
  Sender: FDA-Public Use
  Company Number: US-BIOGENIDEC-2009BI042191

PATIENT
  Age: 38 Year
  Sex: Male

DRUGS (1)
  1. AVONEX [Suspect]
     Indication: MULTIPLE SCLEROSIS
     Route: 030
     Dates: start: 20091002, end: 20091030

REACTIONS (3)
  - MUSCULOSKELETAL DISORDER [None]
  - MULTIPLE SCLEROSIS RELAPSE [None]
  - HYPERSENSITIVITY [None]
